FAERS Safety Report 17930017 (Version 1)
Quarter: 2020Q2

REPORT INFORMATION
  Report Type: Report from Study
  Country: None (occurrence: US)
  Receive Date: 20200623
  Receipt Date: 20200623
  Transmission Date: 20200714
  Serious: No
  Sender: FDA-Public Use
  Company Number: US-BIOVITRUM-2019US1815

PATIENT
  Sex: Female

DRUGS (2)
  1. KINERET [Suspect]
     Active Substance: ANAKINRA
     Route: 058
  2. TRAMADOL. [Suspect]
     Active Substance: TRAMADOL

REACTIONS (2)
  - Musculoskeletal pain [Unknown]
  - Hallucination [Unknown]
